FAERS Safety Report 7795946-0 (Version None)
Quarter: 2011Q4

REPORT INFORMATION
  Report Type: 
  Country: None (occurrence: None)
  Receive Date: 20111004
  Receipt Date: 20110802
  Transmission Date: 20120403
  Serious: No
  Sender: FDA-Public Use
  Company Number: US-TYCO HEALTHCARE/MALLINCKRODT-T201100913

PATIENT
  Sex: Female

DRUGS (3)
  1. MD-76R [Suspect]
     Indication: STENT PLACEMENT
     Dosage: UNK
     Dates: start: 20110413, end: 20110413
  2. STEROIDS [Concomitant]
     Dosage: UNK
     Dates: start: 20110413, end: 20110413
  3. OPTIRAY 160 [Suspect]
     Indication: STENT PLACEMENT
     Dosage: 250 ML, SINGLE
     Route: 013
     Dates: start: 20110413, end: 20110413

REACTIONS (3)
  - PRURITUS [None]
  - RASH [None]
  - URTICARIA [None]
